FAERS Safety Report 17426617 (Version 1)
Quarter: 2020Q1

REPORT INFORMATION
  Report Type: Spontaneous
  Country: IN (occurrence: IN)
  Receive Date: 20200217
  Receipt Date: 20200217
  Transmission Date: 20200409
  Serious: Yes (Death, Hospitalization, Other)
  Sender: FDA-Public Use
  Company Number: NVSC2020IN041318

PATIENT
  Age: 54 Year
  Sex: Male

DRUGS (3)
  1. OCTREOTIDE. [Suspect]
     Active Substance: OCTREOTIDE
     Indication: ACUTE KIDNEY INJURY
     Dosage: UNK
     Route: 065
  2. TERLIPRESSIN [Suspect]
     Active Substance: TERLIPRESSIN
     Indication: ACUTE KIDNEY INJURY
     Dosage: 2 MG, QD (CONTINOUS INFUSION 48 HOURS)
     Route: 041
  3. MIDODRINE [Suspect]
     Active Substance: MIDODRINE
     Indication: ACUTE KIDNEY INJURY
     Dosage: UNK
     Route: 065

REACTIONS (3)
  - Renal impairment [Unknown]
  - Multiple organ dysfunction syndrome [Fatal]
  - Product use in unapproved indication [Unknown]
